FAERS Safety Report 11447449 (Version 1)
Quarter: 2015Q3

REPORT INFORMATION
  Report Type: Spontaneous
  Country: US (occurrence: US)
  Receive Date: 20150902
  Receipt Date: 20150902
  Transmission Date: 20151125
  Serious: No
  Sender: FDA-Public Use
  Company Number: US-JNJFOC-20150814736

PATIENT

DRUGS (2)
  1. METHYLPHENIDATE HYDROCHLORIDE. [Suspect]
     Active Substance: METHYLPHENIDATE HYDROCHLORIDE
     Indication: ABNORMAL BEHAVIOUR
     Route: 048
  2. METHYLPHENIDATE HYDROCHLORIDE. [Suspect]
     Active Substance: METHYLPHENIDATE HYDROCHLORIDE
     Indication: EMOTIONAL DISORDER
     Route: 048

REACTIONS (13)
  - Tic [Unknown]
  - Weight decreased [Unknown]
  - Insomnia [Unknown]
  - Vomiting [Unknown]
  - Anger [Unknown]
  - Decreased appetite [Unknown]
  - Nausea [Unknown]
  - Tachyphrenia [Unknown]
  - Akathisia [Unknown]
  - Irritability [Unknown]
  - Abdominal pain [Unknown]
  - Affect lability [Unknown]
  - Apathy [Unknown]
